FAERS Safety Report 7276749-2 (Version None)
Quarter: 2011Q1

REPORT INFORMATION
  Report Type: 
  Country: None (occurrence: None)
  Receive Date: 20110204
  Receipt Date: 20110124
  Transmission Date: 20110831
  Serious: Yes (Hospitalization)
  Sender: FDA-Public Use
  Company Number: JP-AMGEN-JPNCT2011000263

PATIENT
  Age: 66 Year
  Sex: Female
  Weight: 41 kg

DRUGS (10)
  1. HIRUDOID SOFT [Concomitant]
     Route: 062
  2. OXYCONTIN [Concomitant]
     Route: 048
  3. BLOPRESS [Concomitant]
     Route: 048
  4. LOCOID CREAM [Concomitant]
     Route: 062
  5. LOXONIN [Concomitant]
     Route: 048
  6. PANITUMUMAB [Suspect]
     Dosage: 6 MG/KG, Q2WK
     Route: 041
     Dates: start: 20100827, end: 20100927
  7. MYSER OINTMENT [Concomitant]
     Route: 062
  8. OXINORM [Concomitant]
     Route: 048
  9. MUCOSTA [Concomitant]
     Indication: GASTRITIS
     Route: 048
  10. PANITUMUMAB [Suspect]
     Indication: COLORECTAL CANCER
     Dosage: 6 MG/KG, Q2WK
     Route: 041
     Dates: start: 20100726, end: 20100726

REACTIONS (3)
  - CANCER PAIN [None]
  - DECREASED APPETITE [None]
  - ACNE [None]
